FAERS Safety Report 4824991-X (Version None)
Quarter: 2005Q4

REPORT INFORMATION
  Report Type: 
  Country: None (occurrence: None)
  Receive Date: 20051110
  Receipt Date: 20051031
  Transmission Date: 20060501
  Serious: Yes (Hospitalization)
  Sender: FDA-Public Use
  Company Number: JP-MERCK-0511USA00662

PATIENT
  Age: 75 Year
  Sex: Male

DRUGS (3)
  1. COZAAR [Suspect]
     Route: 048
     Dates: start: 20020605
  2. CINALONG [Concomitant]
     Route: 048
     Dates: start: 20020605
  3. ALLOPURINOL [Concomitant]
     Route: 048
     Dates: start: 20020605

REACTIONS (2)
  - BLOOD TRIGLYCERIDES INCREASED [None]
  - RETINAL VEIN OCCLUSION [None]
